FAERS Safety Report 9412008 (Version 2)
Quarter: 2013Q3

REPORT INFORMATION
  Report Type: Spontaneous
  Country: US (occurrence: US)
  Receive Date: 20130722
  Receipt Date: 20130729
  Transmission Date: 20140515
  Serious: Yes (Death)
  Sender: FDA-Public Use
  Company Number: US-AMGEN-USASP2013050500

PATIENT
  Sex: 0

DRUGS (1)
  1. PROLIA [Suspect]
     Indication: OSTEOPOROSIS
     Route: 065

REACTIONS (1)
  - Neoplasm malignant [Fatal]
